FAERS Safety Report 23801847 (Version 1)
Quarter: 2024Q2

REPORT INFORMATION
  Report Type: Spontaneous
  Country: US (occurrence: US)
  Receive Date: 20240501
  Receipt Date: 20240501
  Transmission Date: 20240716
  Serious: No
  Sender: FDA-Public Use
  Company Number: US-CADILA HEALTHCARE LIMITED-US-ZYDUS-095670

PATIENT

DRUGS (2)
  1. TIZANIDINE [Suspect]
     Active Substance: TIZANIDINE
     Indication: Product used for unknown indication
     Dosage: 24 24, BID
     Route: 048
     Dates: start: 20230619, end: 20230622
  2. TIZANIDINE [Suspect]
     Active Substance: TIZANIDINE
     Dosage: 0 0, BID
     Route: 048
     Dates: start: 20230625, end: 20230626

REACTIONS (2)
  - Abdominal discomfort [Recovered/Resolved]
  - Product substitution issue [Recovered/Resolved]

NARRATIVE: CASE EVENT DATE: 20230619
